FAERS Safety Report 22757092 (Version 12)
Quarter: 2024Q1

REPORT INFORMATION
  Report Type: Spontaneous
  Country: US (occurrence: US)
  Receive Date: 20230727
  Receipt Date: 20240306
  Transmission Date: 20240410
  Serious: Yes (Other)
  Sender: FDA-Public Use
  Company Number: US-PFIZER INC-2020045877

PATIENT
  Age: 76 Year
  Sex: Female
  Weight: 67.13 kg

DRUGS (12)
  1. PREMARIN [Suspect]
     Active Substance: ESTROGENS, CONJUGATED
     Indication: Uterine prolapse
     Dosage: QUANTITY FOR 90 DAYS: 30 MG
  2. PREMARIN [Suspect]
     Active Substance: ESTROGENS, CONJUGATED
     Dosage: QUANTITY FOR 90 DAYS: 1.875 MG/G
  3. PREMARIN [Suspect]
     Active Substance: ESTROGENS, CONJUGATED
     Dosage: QUANTITY FOR 90 DAYS: 90
     Route: 067
  4. PREMARIN [Suspect]
     Active Substance: ESTROGENS, CONJUGATED
     Dosage: QUANTITY FOR 90 DAYS: 3
  5. PREMARIN [Suspect]
     Active Substance: ESTROGENS, CONJUGATED
     Dosage: DIRECTIONS: 0.25 GM VAG M/TH, INSTR: USE TWICE WEEKLY
     Route: 067
  6. PREMARIN [Suspect]
     Active Substance: ESTROGENS, CONJUGATED
     Dosage: STRENGTH: 0.25, QUANTITY FOR 90 DAYS: 30
  7. PREMARIN [Suspect]
     Active Substance: ESTROGENS, CONJUGATED
     Dosage: STRENGTH: 30 GM, QUANTITY FOR 90 DAYS: 1
  8. PREMARIN [Suspect]
     Active Substance: ESTROGENS, CONJUGATED
     Dosage: 0.5 GM VAGINALLY NIGHTLY X 2 WEEKS THEN TWICE WEEKLY THEREAFTER M/TH
     Route: 067
  9. PREMARIN [Suspect]
     Active Substance: ESTROGENS, CONJUGATED
     Dosage: STRENGTH: 6.25 GM, QUANTITY FOR 90 DAYS: 30 GMS
  10. PREMARIN [Suspect]
     Active Substance: ESTROGENS, CONJUGATED
     Dosage: 1 GM VAG M/TH, INSTR: USE TWICE WEEKLY
     Route: 067
  11. METOPROLOL [Concomitant]
     Active Substance: METOPROLOL
     Indication: Hypertension
     Dosage: UNK
  12. AMLODIPINE [Concomitant]
     Active Substance: AMLODIPINE BESYLATE
     Indication: Hypertension
     Dosage: UNK

REACTIONS (7)
  - Eye infection [Unknown]
  - Eye laser surgery [Unknown]
  - Intraocular pressure increased [Unknown]
  - Off label use [Unknown]
  - Product prescribing error [Unknown]
  - Body height decreased [Unknown]
  - Malaise [Unknown]
